FAERS Safety Report 4423343-4 (Version None)
Quarter: 2004Q3

REPORT INFORMATION
  Report Type: 
  Country: None (occurrence: None)
  Receive Date: 20040806
  Receipt Date: 20040803
  Transmission Date: 20050211
  Serious: Yes (Other)
  Sender: FDA-Public Use
  Company Number: 002283

PATIENT
  Age: 62 Year
  Sex: Female

DRUGS (7)
  1. MEDROXYPROGESTERONE ACETATE [Suspect]
     Dosage: SEE IMAGE
     Dates: start: 19920807, end: 19960917
  2. MEDROXYPROGESTERONE ACETATE [Suspect]
     Dosage: SEE IMAGE
     Dates: start: 19991201, end: 20000316
  3. PREMARIN [Suspect]
     Dosage: SEE IMAGE
     Dates: start: 19920807, end: 19960917
  4. PREMARIN [Suspect]
     Dosage: SEE IMAGE
     Dates: start: 19991201, end: 20000316
  5. PROVERA [Suspect]
     Dosage: SEE IMAGE
     Dates: start: 19920807, end: 19960917
  6. PROVERA [Suspect]
     Dosage: SEE IMAGE
     Dates: start: 19991201, end: 20000316
  7. MEDROXYPROGESTERONE ACETATE [Suspect]
     Dates: start: 19960917, end: 19991201

REACTIONS (1)
  - BREAST CANCER FEMALE [None]
